FAERS Safety Report 16527802 (Version 1)
Quarter: 2019Q3

REPORT INFORMATION
  Report Type: Spontaneous
  Country: CA (occurrence: CA)
  Receive Date: 20190703
  Receipt Date: 20190703
  Transmission Date: 20191004
  Serious: Yes (Disabling)
  Sender: FDA-Public Use
  Company Number: CA-TEVA-2019-CA-1071641

PATIENT
  Age: 17 Year
  Sex: Female
  Weight: 54 kg

DRUGS (17)
  1. BECLOMETHASONE [Concomitant]
     Active Substance: BECLOMETHASONE
  2. CALCIUM [Concomitant]
     Active Substance: CALCIUM
  3. SALBUTAMOL [Concomitant]
     Active Substance: ALBUTEROL
  4. OMEPRAZOLE. [Concomitant]
     Active Substance: OMEPRAZOLE
  5. PULMOZYME [Concomitant]
     Active Substance: DORNASE ALFA
  6. FORMOTEROL AND MOMETASONE [Concomitant]
  7. LEVOFLOXACIN. [Suspect]
     Active Substance: LEVOFLOXACIN
     Indication: LUNG INFECTION
     Dosage: 750 MILLIGRAM DAILY;
     Route: 048
  8. ACIDOPHILUS [Concomitant]
     Active Substance: LACTOBACILLUS ACIDOPHILUS
  9. MULTIVITAMINS WITH MINERALS [Concomitant]
     Active Substance: MINERALS\VITAMINS
  10. PANCRELIPASE. [Concomitant]
     Active Substance: PANCRELIPASE
  11. CHROMIUM [Concomitant]
     Active Substance: CHROMIC CHLORIDE\CHROMIUM
  12. VITAMIN B1 [Concomitant]
     Active Substance: THIAMINE HYDROCHLORIDE
  13. MAGNESIUM [Concomitant]
     Active Substance: MAGNESIUM
  14. PREDNISONE. [Concomitant]
     Active Substance: PREDNISONE
  15. INSULIN ASPART [Concomitant]
     Active Substance: INSULIN ASPART
  16. COD LIVER OIL [Concomitant]
     Active Substance: COD LIVER OIL
  17. URSODIOL. [Concomitant]
     Active Substance: URSODIOL

REACTIONS (4)
  - Blood creatine decreased [Recovered/Resolved]
  - Arthralgia [Recovered/Resolved]
  - Gait disturbance [Recovered/Resolved]
  - Joint swelling [Recovered/Resolved]
